FAERS Safety Report 7509932-9 (Version None)
Quarter: 2011Q2

REPORT INFORMATION
  Report Type: 
  Country: None (occurrence: None)
  Receive Date: 20110527
  Receipt Date: 20101216
  Transmission Date: 20111010
  Serious: Yes (Hospitalization)
  Sender: FDA-Public Use
  Company Number: PHHY2010DK85683

PATIENT
  Sex: Male
  Weight: 23 kg

DRUGS (1)
  1. RITALIN [Suspect]
     Indication: ATTENTION DEFICIT/HYPERACTIVITY DISORDER
     Dosage: 10 MG, QID
     Route: 048
     Dates: start: 20070415, end: 20100930

REACTIONS (4)
  - HALLUCINATION, VISUAL [None]
  - DELUSION [None]
  - HALLUCINATION, AUDITORY [None]
  - COMPULSIONS [None]
